FAERS Safety Report 11027310 (Version 3)
Quarter: 2015Q2

REPORT INFORMATION
  Report Type: Spontaneous
  Country: US (occurrence: US)
  Receive Date: 20150414
  Receipt Date: 20150522
  Transmission Date: 20150821
  Serious: Yes (Death, Other)
  Sender: FDA-Public Use
  Company Number: US-INCYTE CORPORATION-2015IN001530

PATIENT
  Age: 40 Year
  Sex: Male

DRUGS (14)
  1. MORPHINE                           /00036302/ [Concomitant]
     Active Substance: MORPHINE
  2. ACTIGALL [Concomitant]
     Active Substance: URSODIOL
  3. MAGNESIUM LACTATE [Concomitant]
     Active Substance: MAGNESIUM LACTATE
  4. VFEND [Concomitant]
     Active Substance: VORICONAZOLE
  5. INSULIN ASPART [Concomitant]
     Active Substance: INSULIN ASPART
  6. ENTOCORT [Concomitant]
     Active Substance: BUDESONIDE
  7. K-DUR [Concomitant]
     Active Substance: POTASSIUM CHLORIDE
  8. PREDNISONE. [Concomitant]
     Active Substance: PREDNISONE
  9. PHOSPHA 250 NEUTRAL [Concomitant]
     Active Substance: POTASSIUM PHOSPHATE, MONOBASIC\SODIUM PHOSPHATE, DIBASIC, ANHYDROUS\SODIUM PHOSPHATE, MONOBASIC, MONOHYDRATE
  10. INSULIN NPH                        /01223208/ [Concomitant]
  11. PROGRAF [Concomitant]
     Active Substance: TACROLIMUS\TACROLIMUS ANHYDROUS
  12. CALCIUM CARBONATE AND VITAMIN D [Concomitant]
  13. JAKAFI [Suspect]
     Active Substance: RUXOLITINIB
     Indication: MYELOFIBROSIS
     Dosage: NOT SPECIFIED
     Route: 048
  14. ACYCLOVIR                          /00587301/ [Concomitant]
     Active Substance: ACYCLOVIR

REACTIONS (3)
  - Pneumocystis jirovecii pneumonia [Fatal]
  - Leukaemia [Unknown]
  - Graft versus host disease [Unknown]

NARRATIVE: CASE EVENT DATE: 20140720
